FAERS Safety Report 7551059-4 (Version None)
Quarter: 2011Q2

REPORT INFORMATION
  Report Type: 
  Country: None (occurrence: None)
  Receive Date: 20110616
  Receipt Date: 20110607
  Transmission Date: 20111010
  Serious: Yes (Hospitalization)
  Sender: FDA-Public Use
  Company Number: FR-SANOFI-AVENTIS-2011SA036909

PATIENT
  Age: 69 Year
  Sex: Male

DRUGS (23)
  1. FUROSEMIDE [Suspect]
     Dosage: 6 TABLETS.
     Route: 048
     Dates: start: 20090701, end: 20090701
  2. ASPIRIN [Concomitant]
     Route: 048
  3. RAMIPRIL [Suspect]
     Route: 048
  4. GLUCOPHAGE [Suspect]
     Route: 048
  5. TRIMEPRAZINE TARTRATE [Concomitant]
     Route: 065
  6. TENORMIN [Suspect]
     Route: 048
  7. BUSPAR [Suspect]
     Route: 048
  8. PRAVASTATIN [Concomitant]
     Route: 048
  9. LYRICA [Concomitant]
     Route: 065
  10. FUROSEMIDE [Suspect]
     Dosage: 6 TABLETS.
     Route: 048
     Dates: start: 20090701, end: 20090701
  11. RAMIPRIL [Suspect]
     Route: 048
  12. GLUCOPHAGE [Suspect]
     Dosage: 20 TABLETS OF 850 MG.
     Route: 048
     Dates: start: 20090701, end: 20090701
  13. MIRTAZAPINE [Concomitant]
     Route: 048
  14. FUROSEMIDE [Suspect]
     Route: 048
  15. RAMIPRIL [Suspect]
     Dosage: 20 TABLETS.
     Route: 048
     Dates: start: 20090701, end: 20090701
  16. TENORMIN [Suspect]
     Dosage: 8 TABLETS.
     Route: 048
     Dates: start: 20090701, end: 20090701
  17. GLUCOPHAGE [Suspect]
     Route: 048
  18. FUROSEMIDE [Suspect]
     Route: 048
  19. TENORMIN [Suspect]
     Route: 048
  20. RAMIPRIL [Suspect]
     Dosage: 20 TABLETS.
     Route: 048
     Dates: start: 20090701, end: 20090701
  21. TENORMIN [Suspect]
     Dosage: 8 TABLETS.
     Route: 048
     Dates: start: 20090701, end: 20090701
  22. ATARAX [Suspect]
     Route: 048
  23. GLUCOPHAGE [Suspect]
     Dosage: 20 TABLETS OF 850 MG.
     Route: 048
     Dates: start: 20090701, end: 20090701

REACTIONS (3)
  - INTENTIONAL OVERDOSE [None]
  - SUICIDE ATTEMPT [None]
  - HYPOGLYCAEMIA [None]
